FAERS Safety Report 8252592-2 (Version None)
Quarter: 2012Q2

REPORT INFORMATION
  Report Type: 
  Country: None (occurrence: None)
  Receive Date: 20120402
  Receipt Date: 20111111
  Transmission Date: 20120825
  Serious: No
  Sender: FDA-Public Use
  Company Number: US-ABBOTT-11P-163-0874393-00

PATIENT
  Sex: Male
  Weight: 129.39 kg

DRUGS (6)
  1. ANDROGEL [Suspect]
     Indication: BLOOD TESTOSTERONE DECREASED
     Dosage: 6 PUMPS ONCE DAILY, ON LEGS PER MD
     Route: 061
  2. LEVOXYL [Concomitant]
     Indication: PITUITARY TUMOUR REMOVAL
  3. HYDROCORTISONE [Concomitant]
     Indication: PRODUCT USED FOR UNKNOWN INDICATION
     Dosage: 20 MG IN MORNING AND 10 MG IN EVENING
     Route: 048
  4. ALOSARTAN POTASSIUM [Concomitant]
     Indication: HYPERTENSION
     Route: 048
  5. SIMVASTATIN [Concomitant]
     Indication: BLOOD CHOLESTEROL INCREASED
  6. ANDROGEL [Suspect]
     Indication: PITUITARY TUMOUR REMOVAL

REACTIONS (3)
  - SLUGGISHNESS [None]
  - INAPPROPRIATE SCHEDULE OF DRUG ADMINISTRATION [None]
  - FATIGUE [None]
